FAERS Safety Report 11596789 (Version 1)
Quarter: 2015Q4

REPORT INFORMATION
  Report Type: Spontaneous
  Country: US (occurrence: None)
  Receive Date: 20151005
  Receipt Date: 20151005
  Transmission Date: 20160304
  Serious: Yes (Life-Threatening, Hospitalization, Disabling, Other)
  Sender: FDA-Public Use
  Company Number: None

PATIENT
  Age: 60 Year

DRUGS (2)
  1. LABETALOL [Concomitant]
     Active Substance: LABETALOL\LABETALOL HYDROCHLORIDE
  2. LEVOFLOXACIN 500 MG AUROBINDO PHARMA [Suspect]
     Active Substance: LEVOFLOXACIN
     Indication: BRONCHITIS VIRAL
     Dosage: 1
     Route: 048
     Dates: start: 20150503, end: 20150508

REACTIONS (10)
  - Endocrine disorder [None]
  - Dizziness [None]
  - Dyspnoea [None]
  - Palpitations [None]
  - Anxiety [None]
  - Asthenia [None]
  - Thyroid disorder [None]
  - Tinnitus [None]
  - Hypertension [None]
  - Nervousness [None]

NARRATIVE: CASE EVENT DATE: 20150517
